FAERS Safety Report 7604966-8 (Version None)
Quarter: 2011Q3

REPORT INFORMATION
  Report Type: 
  Country: None (occurrence: None)
  Receive Date: 20110713
  Receipt Date: 20110705
  Transmission Date: 20111222
  Serious: No
  Sender: FDA-Public Use
  Company Number: US-BIOGENIDEC-2011BI021889

PATIENT
  Age: 69 Year
  Sex: Female

DRUGS (5)
  1. AVONEX [Concomitant]
     Route: 030
  2. TYSABRI [Suspect]
     Route: 042
     Dates: start: 20061016, end: 20090206
  3. TYSABRI [Suspect]
     Route: 042
     Dates: start: 20050203
  4. AVONEX [Concomitant]
     Indication: MULTIPLE SCLEROSIS
     Route: 030
     Dates: start: 20050610, end: 20061220
  5. TYSABRI [Suspect]
     Indication: MULTIPLE SCLEROSIS
     Route: 042
     Dates: start: 20091112, end: 20110601

REACTIONS (7)
  - DRUG INEFFECTIVE [None]
  - PAIN IN EXTREMITY [None]
  - BALANCE DISORDER [None]
  - MUSCULOSKELETAL STIFFNESS [None]
  - PARAESTHESIA [None]
  - HYPOAESTHESIA [None]
  - FEELING ABNORMAL [None]
